FAERS Safety Report 5233888-5 (Version None)
Quarter: 2007Q1

REPORT INFORMATION
  Report Type: 
  Country: None (occurrence: None)
  Receive Date: 20061204
  Receipt Date: 20060823
  Transmission Date: 20070707
  Serious: No
  Sender: FDA-Public Use
  Company Number: 2006-BP-07306BP

PATIENT
  Sex: Female

DRUGS (8)
  1. SPIRIVA [Suspect]
     Indication: CHRONIC OBSTRUCTIVE PULMONARY DISEASE
     Dosage: 18 MCG (18 MCG,1 IN 1 D),IH
     Route: 055
     Dates: start: 20060101
  2. NORVASC [Concomitant]
  3. CAPTOPRIL [Concomitant]
  4. HYDROCHLOROTHIAZIDE [Concomitant]
  5. FE SUPPLEMENT (ALL OTHER THERAPEUTIC PRODUCTS) [Concomitant]
  6. CENTRUM SILVER (CENTRUM SILVER /01292501/) [Concomitant]
  7. SEREVENT [Concomitant]
  8. ALBUTEROL [Concomitant]

REACTIONS (1)
  - DYSGEUSIA [None]
